FAERS Safety Report 5090696-6 (Version None)
Quarter: 2006Q3

REPORT INFORMATION
  Report Type: 
  Country: None (occurrence: None)
  Receive Date: 20060823
  Receipt Date: 20060717
  Transmission Date: 20061208
  Serious: No
  Sender: FDA-Public Use
  Company Number: DEPFP-S-20060020

PATIENT
  Age: 52 Year
  Sex: Female

DRUGS (6)
  1. NAVELBINE [Suspect]
     Indication: NON-SMALL CELL LUNG CANCER
     Dosage: 55 MG DAILY IV
     Route: 042
     Dates: start: 20060601
  2. CISPLATIN [Concomitant]
  3. KEVATRIL [Concomitant]
  4. ONDANSETRON HCL [Concomitant]
  5. TAVOR [Concomitant]
  6. FORTECORTIN [Concomitant]

REACTIONS (1)
  - THROAT TIGHTNESS [None]
